FAERS Safety Report 9193687 (Version 2)
Quarter: 2013Q2

REPORT INFORMATION
  Report Type: Spontaneous
  Country: US (occurrence: None)
  Receive Date: 20120703
  Receipt Date: 20130107
  Transmission Date: 20140414
  Serious: No
  Sender: FDA-Public Use
  Company Number: PHEH2012US007080

PATIENT
  Age: 73 Year
  Sex: Female
  Weight: 90.7 kg

DRUGS (8)
  1. GILENYA (FTY) CAPSULE, 0.5MG [Suspect]
     Indication: MULTIPLE SCLEROSIS
     Route: 048
  2. SYNTHROID (LEVOTHYROXINE SODIUM) [Concomitant]
  3. NEURONTIN (GABAPENTIN) [Concomitant]
  4. TRILEPTAL (OXCARBAZEPINE) [Concomitant]
  5. METOPROLOL [Concomitant]
  6. FOLIC ACID [Concomitant]
  7. VITAMIN B COMPLEX (CALCIUM PANTOTHENATE, NICOTINAMIDE, PYRIDOXINE HYDROCHLORIDE, RIBOFLAVIN, THIAMINE HYDROCHLORIDE) [Concomitant]
  8. OMEGA (CARBINOXAMINE MALEATE) [Concomitant]

REACTIONS (5)
  - Photophobia [None]
  - Pain in extremity [None]
  - Vision blurred [None]
  - Memory impairment [None]
  - Hypertension [None]
